FAERS Safety Report 5832874-1 (Version None)
Quarter: 2008Q3

REPORT INFORMATION
  Report Type: 
  Country: None (occurrence: None)
  Receive Date: 20080730
  Receipt Date: 20080718
  Transmission Date: 20090109
  Serious: Yes (Hospitalization)
  Sender: FDA-Public Use
  Company Number: THQ2008A01276

PATIENT
  Age: 56 Year
  Sex: Male

DRUGS (6)
  1. ACTOS [Suspect]
     Indication: DIABETES MELLITUS
     Dosage: 45 MG (45 MG, 1 IN 1 D) PER ORAL
     Route: 048
     Dates: start: 20030101
  2. THYROX (LEVOTHYROXINE SODIUM) [Concomitant]
  3. LIPITOR [Concomitant]
  4. GUCOPHAGE (METFORMIN) [Concomitant]
  5. SALOSPIR (ACETYLSALICYLIC ACID) [Concomitant]
  6. PRITOR /01421801/ (TELMISARTAN) [Concomitant]

REACTIONS (1)
  - OSTEONECROSIS [None]
